FAERS Safety Report 5504503-8 (Version None)
Quarter: 2007Q4

REPORT INFORMATION
  Report Type: 
  Country: None (occurrence: None)
  Receive Date: 20071031
  Receipt Date: 20071018
  Transmission Date: 20080405
  Serious: Yes (Other)
  Sender: FDA-Public Use
  Company Number: 2007333459

PATIENT
  Age: 12 Year
  Sex: Male

DRUGS (1)
  1. LISTERINE FRESCOR CITRICO (MENTHOL, METHYL SALICYLATE, EUCALYPTOL, THY [Suspect]
     Indication: DENTAL DISORDER PROPHYLAXIS
     Dosage: ^MORE THAN THREE TIMES A DAY^, ORAL
     Route: 048

REACTIONS (2)
  - DYSGEUSIA [None]
  - TONGUE EXFOLIATION [None]
